FAERS Safety Report 8511178-2 (Version None)
Quarter: 2012Q3

REPORT INFORMATION
  Report Type: 
  Country: None (occurrence: None)
  Receive Date: 20120716
  Receipt Date: 20120702
  Transmission Date: 20120928
  Serious: No
  Sender: FDA-Public Use
  Company Number: US-ASTRAZENECA-2011SE02328

PATIENT
  Age: 58 Year
  Sex: Female

DRUGS (2)
  1. SEROQUEL [Suspect]
     Indication: BIPOLAR DISORDER
     Route: 048
     Dates: start: 20091001, end: 20100101
  2. NEXIUM [Suspect]
     Route: 048
     Dates: start: 20091001

REACTIONS (12)
  - ATTENTION DEFICIT/HYPERACTIVITY DISORDER [None]
  - VOMITING [None]
  - CONCUSSION [None]
  - GASTROOESOPHAGEAL REFLUX DISEASE [None]
  - DRUG INEFFECTIVE [None]
  - ARTHRITIS [None]
  - FEELING ABNORMAL [None]
  - BIPOLAR DISORDER [None]
  - INSOMNIA [None]
  - ADVERSE EVENT [None]
  - RESTLESS LEGS SYNDROME [None]
  - DRUG DOSE OMISSION [None]
